FAERS Safety Report 9861595 (Version 2)
Quarter: 2014Q1

REPORT INFORMATION
  Report Type: Spontaneous
  Country: US (occurrence: US)
  Receive Date: 20140203
  Receipt Date: 20140325
  Transmission Date: 20141002
  Serious: No
  Sender: FDA-Public Use
  Company Number: US-BIOGENIDEC-2014BI010125

PATIENT
  Sex: Female

DRUGS (3)
  1. TYSABRI [Suspect]
     Indication: MULTIPLE SCLEROSIS
     Route: 042
     Dates: start: 20090415
  2. AVONEX [Concomitant]
     Indication: MULTIPLE SCLEROSIS
     Route: 030
     Dates: start: 19980801
  3. AVONEX [Concomitant]
     Indication: MULTIPLE SCLEROSIS
     Route: 030
     Dates: start: 20131228

REACTIONS (10)
  - Hypothyroidism [Not Recovered/Not Resolved]
  - Emotional disorder [Recovered/Resolved with Sequelae]
  - Amnesia [Not Recovered/Not Resolved]
  - Frustration [Not Recovered/Not Resolved]
  - Panic reaction [Recovered/Resolved]
  - Nervousness [Unknown]
  - Tremor [Recovered/Resolved]
  - Irritability [Unknown]
  - Eating disorder [Not Recovered/Not Resolved]
  - Hypersensitivity [Unknown]
